FAERS Safety Report 5298558-6 (Version None)
Quarter: 2007Q2

REPORT INFORMATION
  Report Type: 
  Country: None (occurrence: None)
  Receive Date: 20070409
  Receipt Date: 20070328
  Transmission Date: 20071010
  Serious: Yes (Hospitalization)
  Sender: FDA-Public Use
  Company Number: 2007BI006853

PATIENT
  Sex: Male
  Weight: 71.6683 kg

DRUGS (11)
  1. AVONEX [Suspect]
     Indication: MULTIPLE SCLEROSIS
     Dosage: 30 UG;QW;IM
     Route: 030
     Dates: start: 20070201
  2. PREVACID [Concomitant]
  3. LISINOPRIL [Concomitant]
  4. KU-ZYME [Concomitant]
  5. TRAZODONE HCL [Concomitant]
  6. LYRICA [Concomitant]
  7. AMITRIPTYLINE HCL [Concomitant]
  8. ESTER C [Concomitant]
  9. ZINC [Concomitant]
  10. HUMULIN INSULIN [Concomitant]
  11. NPH INSULIN [Concomitant]

REACTIONS (2)
  - HERNIA [None]
  - PNEUMONIA [None]
